FAERS Safety Report 4290387-5 (Version None)
Quarter: 2004Q1

REPORT INFORMATION
  Report Type: 
  Country: None (occurrence: None)
  Receive Date: 20040206
  Receipt Date: 20040206
  Transmission Date: 20041129
  Serious: Yes (Life-Threatening)
  Sender: FDA-Public Use
  Company Number: None

PATIENT
  Age: 47 Year
  Sex: Male
  Weight: 180 kg

DRUGS (1)
  1. PAXIL [Suspect]
     Indication: DEPRESSION
     Dosage: EVERY DAY MORNING ORAL
     Route: 048
     Dates: start: 20020110, end: 20040204

REACTIONS (1)
  - DRUG WITHDRAWAL SYNDROME [None]
